FAERS Safety Report 8420230-1 (Version None)
Quarter: 2012Q2

REPORT INFORMATION
  Report Type: 
  Country: None (occurrence: None)
  Receive Date: 20120607
  Receipt Date: 20120605
  Transmission Date: 20120825
  Serious: Yes (Other)
  Sender: FDA-Public Use
  Company Number: CA-ABBOTT-12P-028-0909962-00

PATIENT
  Sex: Female
  Weight: 69.916 kg

DRUGS (6)
  1. METHOTREXATE [Concomitant]
     Indication: RHEUMATOID ARTHRITIS
     Dosage: 10 TABLETS WEEKLY
     Route: 048
     Dates: start: 20120101
  2. VITAMIN D [Concomitant]
     Indication: SUPPLEMENTATION THERAPY
     Dates: start: 20090101
  3. VITAMIN B-12 [Concomitant]
     Indication: SUPPLEMENTATION THERAPY
     Route: 048
     Dates: start: 20090101
  4. HUMIRA [Suspect]
     Indication: RHEUMATOID ARTHRITIS
     Route: 058
     Dates: start: 20070101
  5. CYMBALTA [Suspect]
     Indication: PRODUCT USED FOR UNKNOWN INDICATION
  6. FOLIC ACID [Concomitant]
     Indication: BLOOD TEST ABNORMAL
     Route: 048
     Dates: start: 20060101

REACTIONS (10)
  - DRY MOUTH [None]
  - CHRONIC OBSTRUCTIVE PULMONARY DISEASE [None]
  - DYSPNOEA [None]
  - CHEST DISCOMFORT [None]
  - PANIC ATTACK [None]
  - FIBROMYALGIA [None]
  - FEELING ABNORMAL [None]
  - TREMOR [None]
  - ADVERSE DRUG REACTION [None]
  - OSTEOARTHRITIS [None]
